FAERS Safety Report 9207080 (Version 2)
Quarter: 2014Q1

REPORT INFORMATION
  Report Type: Spontaneous
  Country: US (occurrence: US)
  Receive Date: 20130403
  Receipt Date: 20140204
  Transmission Date: 20141002
  Serious: Yes (Hospitalization, Other)
  Sender: FDA-Public Use
  Company Number: US-BAYER-2013-039564

PATIENT
  Age: 45 Year
  Sex: Female

DRUGS (7)
  1. YAZ [Suspect]
     Dosage: UNK
     Dates: start: 2008, end: 2011
  2. OCELLA [Suspect]
     Dosage: UNK
     Dates: start: 2008, end: 2011
  3. GENTAMICIN [Concomitant]
     Dosage: 3 UNK, UNK
  4. CLONAZEPAM [Concomitant]
     Dosage: 1 MG, UNK
  5. KLONOPIN [Concomitant]
     Dosage: 1 MG, TID PER DAY
  6. CIPRO [Concomitant]
  7. FLAGYL [Concomitant]

REACTIONS (6)
  - Gallbladder disorder [None]
  - Cholecystitis acute [None]
  - Cholecystitis infective [None]
  - Injury [None]
  - Pain [None]
  - Emotional distress [None]
